FAERS Safety Report 7120609-4 (Version None)
Quarter: 2010Q4

REPORT INFORMATION
  Report Type: 
  Country: None (occurrence: None)
  Receive Date: 20101122
  Receipt Date: 20101122
  Transmission Date: 20110411
  Serious: Yes (Hospitalization)
  Sender: FDA-Public Use
  Company Number: None

PATIENT
  Age: 80 Year
  Sex: Female
  Weight: 66.6788 kg

DRUGS (2)
  1. TOVIAZ [Suspect]
     Indication: CYSTITIS
     Dosage: 1 PILL 1; 1 PILL 1
     Dates: start: 20101007
  2. TOVIAZ [Suspect]
     Indication: CYSTITIS
     Dosage: 1 PILL 1; 1 PILL 1
     Dates: start: 20101008

REACTIONS (3)
  - CYSTITIS [None]
  - KIDNEY INFECTION [None]
  - SEPSIS [None]
